FAERS Safety Report 22057065 (Version 1)
Quarter: 2023Q1

REPORT INFORMATION
  Report Type: Spontaneous
  Country: JP (occurrence: JP)
  Receive Date: 20230303
  Receipt Date: 20230303
  Transmission Date: 20230418
  Serious: Yes (Death, Other)
  Sender: FDA-Public Use
  Company Number: JP-ALKEM LABORATORIES LIMITED-JP-ALKEM-2023-01647

PATIENT
  Age: 47 Year
  Sex: Male

DRUGS (3)
  1. TACROLIMUS [Suspect]
     Active Substance: TACROLIMUS
     Indication: Prophylaxis
     Dosage: UNK
     Route: 065
  2. FLUDARABINE [Concomitant]
     Active Substance: FLUDARABINE PHOSPHATE
     Indication: Precursor T-lymphoblastic lymphoma/leukaemia
     Dosage: 180 MILLIGRAM/SQ. METER
     Route: 065
  3. MELPHALAN [Concomitant]
     Active Substance: MELPHALAN
     Indication: Precursor T-lymphoblastic lymphoma/leukaemia
     Dosage: 140 MILLIGRAM/SQ. METER
     Route: 065

REACTIONS (1)
  - Mucormycosis [Fatal]
